FAERS Safety Report 12354929 (Version 2)
Quarter: 2024Q1

REPORT INFORMATION
  Report Type: Other
  Country: FR (occurrence: FR)
  Receive Date: 20160511
  Receipt Date: 20240314
  Transmission Date: 20240410
  Serious: Yes (Other)
  Sender: FDA-Public Use
  Company Number: FR-ROCHE-1753897

PATIENT
  Age: 58 Year
  Sex: Male

DRUGS (5)
  1. COBIMETINIB [Suspect]
     Active Substance: COBIMETINIB
     Indication: Metastatic malignant melanoma
     Dosage: 3 TABS PER DAY
     Route: 048
     Dates: start: 20151126
  2. COBIMETINIB [Suspect]
     Active Substance: COBIMETINIB
     Dosage: 2 TABS/DAY
     Route: 048
  3. VEMURAFENIB [Suspect]
     Active Substance: VEMURAFENIB
     Indication: Metastatic malignant melanoma
     Dosage: 8TABS PER DAY
     Route: 048
     Dates: start: 20151105
  4. RACECADOTRIL [Concomitant]
     Active Substance: RACECADOTRIL
     Route: 048
     Dates: start: 20151217
  5. ONDANSETRON [Concomitant]
     Active Substance: ONDANSETRON
     Route: 048
     Dates: start: 201511

REACTIONS (1)
  - Serous retinal detachment [Recovered/Resolved]

NARRATIVE: CASE EVENT DATE: 20151208
